FAERS Safety Report 10932906 (Version 1)
Quarter: 2015Q1

REPORT INFORMATION
  Report Type: Spontaneous
  Country: US (occurrence: None)
  Receive Date: 20150319
  Receipt Date: 20150319
  Transmission Date: 20150721
  Serious: No
  Sender: FDA-Public Use
  Company Number: 2014CT000222

PATIENT
  Age: 48 Year
  Sex: Female

DRUGS (2)
  1. KORLYM [Suspect]
     Active Substance: MIFEPRISTONE
     Indication: PITUITARY-DEPENDENT CUSHING^S SYNDROME
     Route: 048
     Dates: start: 201408
  2. HCTZ [Concomitant]
     Active Substance: HYDROCHLOROTHIAZIDE

REACTIONS (6)
  - Blood glucose increased [None]
  - Abdominal discomfort [None]
  - Vomiting [None]
  - Infrequent bowel movements [None]
  - Blood pressure increased [None]
  - Aphagia [None]

NARRATIVE: CASE EVENT DATE: 20141209
